FAERS Safety Report 5898568-1 (Version None)
Quarter: 2008Q3

REPORT INFORMATION
  Report Type: 
  Country: None (occurrence: None)
  Receive Date: 20080925
  Receipt Date: 20080124
  Transmission Date: 20090109
  Serious: No
  Sender: FDA-Public Use
  Company Number: A0706415A

PATIENT
  Sex: Female

DRUGS (1)
  1. WELLBUTRIN XL [Suspect]
     Indication: DEPRESSION
     Dosage: 300MG UNKNOWN
     Route: 048

REACTIONS (4)
  - ADVERSE EVENT [None]
  - DRUG INEFFECTIVE [None]
  - PHARMACEUTICAL PRODUCT COMPLAINT [None]
  - TENSION [None]
